FAERS Safety Report 15393316 (Version 1)
Quarter: 2018Q3

REPORT INFORMATION
  Report Type: Other
  Country: US (occurrence: US)
  Receive Date: 20180917
  Receipt Date: 20180917
  Transmission Date: 20181010
  Serious: No
  Sender: FDA-Public Use
  Company Number: US-LEADIANT BIOSCIENCES INC-2017STPI000723

PATIENT
  Age: 85 Year
  Sex: Male

DRUGS (17)
  1. MATULANE [Suspect]
     Active Substance: PROCARBAZINE HYDROCHLORIDE
     Indication: HODGKIN^S DISEASE MIXED CELLULARITY STAGE UNSPECIFIED
     Dosage: 200 MG, DAILY FOR 14 DAYS ON AND 14 DAYS OFF
     Route: 048
     Dates: start: 20170825
  2. ESCITALOPRAM [Concomitant]
     Active Substance: ESCITALOPRAM OXALATE
  3. MEGESTROL ACETATE. [Concomitant]
     Active Substance: MEGESTROL ACETATE
  4. PROAIR HFA [Concomitant]
     Active Substance: ALBUTEROL SULFATE
  5. CYANOCOBALAMIN. [Concomitant]
     Active Substance: CYANOCOBALAMIN
  6. DRONABINOL. [Concomitant]
     Active Substance: DRONABINOL
  7. DULOXETINE. [Concomitant]
     Active Substance: DULOXETINE
  8. DUTASTERIDE. [Concomitant]
     Active Substance: DUTASTERIDE
  9. FUROSEMIDE. [Concomitant]
     Active Substance: FUROSEMIDE
  10. LEUKERAN [Concomitant]
     Active Substance: CHLORAMBUCIL
  11. ONDANSETRON [Concomitant]
     Active Substance: ONDANSETRON
  12. GABAPENTIN. [Concomitant]
     Active Substance: GABAPENTIN
  13. PANTOPRAZOLE [Concomitant]
     Active Substance: PANTOPRAZOLE
  14. VITAMIN D                          /00107901/ [Concomitant]
     Active Substance: ERGOCALCIFEROL
  15. ACYCLOVIR                          /00587301/ [Concomitant]
     Active Substance: ACYCLOVIR
  16. PREDNISONE. [Concomitant]
     Active Substance: PREDNISONE
  17. GUAIFENESIN. [Concomitant]
     Active Substance: GUAIFENESIN

REACTIONS (1)
  - Fatigue [Unknown]

NARRATIVE: CASE EVENT DATE: 201709
